FAERS Safety Report 4784421-3 (Version None)
Quarter: 2005Q3

REPORT INFORMATION
  Report Type: 
  Country: None (occurrence: None)
  Receive Date: 20050928
  Receipt Date: 20050919
  Transmission Date: 20060218
  Serious: Yes (Death, Hospitalization)
  Sender: FDA-Public Use
  Company Number: US-2005-013739

PATIENT
  Age: 72 Year
  Sex: Male
  Weight: 62.1 kg

DRUGS (5)
  1. FLUDARA [Suspect]
     Indication: CHRONIC LYMPHOCYTIC LEUKAEMIA
     Dosage: 25 MG/M2, CYCLE X 5D X 6 CYCLES, INTRAVENOUS
     Route: 042
     Dates: start: 20040412, end: 20040809
  2. RITUXAN [Suspect]
     Indication: CHRONIC LYMPHOCYTIC LEUKAEMIA
     Dosage: 375 MG/M2, D1 OF CYCLE, INTRAVENOUS
     Route: 042
     Dates: start: 20040412, end: 20040913
  3. PREVACID [Concomitant]
  4. ZOCOR [Concomitant]
  5. BACTRIM [Concomitant]

REACTIONS (16)
  - ANAEMIA [None]
  - ASPIRATION [None]
  - CATHETER RELATED COMPLICATION [None]
  - DEEP VEIN THROMBOSIS [None]
  - DIARRHOEA [None]
  - DYSPLASIA [None]
  - ENTEROCOCCAL BACTERAEMIA [None]
  - FEBRILE NEUTROPENIA [None]
  - GASTROINTESTINAL OEDEMA [None]
  - HYPONATRAEMIA [None]
  - MYASTHENIA GRAVIS [None]
  - PANCREATITIS [None]
  - PULMONARY OEDEMA [None]
  - SUBCLAVIAN VEIN THROMBOSIS [None]
  - THROMBOCYTOPENIA [None]
  - WHITE BLOOD CELL COUNT DECREASED [None]
